FAERS Safety Report 18373394 (Version 3)
Quarter: 2021Q4

REPORT INFORMATION
  Report Type: Spontaneous
  Country: FR (occurrence: FR)
  Receive Date: 20201012
  Receipt Date: 20211015
  Transmission Date: 20220303
  Serious: Yes (Other)
  Sender: FDA-Public Use
  Company Number: FR-FERRINGPH-2020FE06847

PATIENT
  Age: 66 Year
  Sex: Female

DRUGS (2)
  1. MINIRIN [Suspect]
     Active Substance: DESMOPRESSIN ACETATE
     Indication: Diabetes insipidus
     Dosage: UNK
     Route: 065
     Dates: start: 1990
  2. DESMOPRESSIN ACETATE [Suspect]
     Active Substance: DESMOPRESSIN ACETATE
     Indication: Diabetes insipidus
     Route: 065

REACTIONS (3)
  - Syncope [Recovered/Resolved]
  - Blood pressure increased [Recovered/Resolved]
  - Wrong technique in product usage process [Recovered/Resolved]
